FAERS Safety Report 19607599 (Version 1)
Quarter: 2021Q3

REPORT INFORMATION
  Report Type: Spontaneous
  Country: KR (occurrence: KR)
  Receive Date: 20210726
  Receipt Date: 20210726
  Transmission Date: 20211014
  Serious: Yes (Other)
  Sender: FDA-Public Use
  Company Number: KR-ROCHE-2873647

PATIENT
  Age: 60 Year
  Sex: Male

DRUGS (5)
  1. ALECTINIB. [Suspect]
     Active Substance: ALECTINIB
     Indication: NEOPLASM MALIGNANT
     Route: 065
  2. CRIZOTINIB [Suspect]
     Active Substance: CRIZOTINIB
     Indication: PRODUCT USED FOR UNKNOWN INDICATION
     Route: 065
  3. CERITINIB [Suspect]
     Active Substance: CERITINIB
     Indication: PRODUCT USED FOR UNKNOWN INDICATION
     Route: 065
  4. CISPLATIN. [Suspect]
     Active Substance: CISPLATIN
     Indication: PRODUCT USED FOR UNKNOWN INDICATION
     Route: 065
  5. PEMETREXED. [Suspect]
     Active Substance: PEMETREXED
     Indication: PRODUCT USED FOR UNKNOWN INDICATION
     Route: 065

REACTIONS (5)
  - Atrial fibrillation [Unknown]
  - Adverse drug reaction [Unknown]
  - Neoplasm malignant [Unknown]
  - Therapeutic response decreased [Unknown]
  - Non-small cell lung cancer metastatic [Unknown]

NARRATIVE: CASE EVENT DATE: 2018
